FAERS Safety Report 11732510 (Version 3)
Quarter: 2016Q1

REPORT INFORMATION
  Report Type: Report from Study
  Country: CA (occurrence: CA)
  Receive Date: 20151113
  Receipt Date: 20160215
  Transmission Date: 20160525
  Serious: Yes (Other)
  Sender: FDA-Public Use
  Company Number: CA-ROCHE-1659592

PATIENT
  Age: 83 Year
  Sex: Male

DRUGS (17)
  1. ESBRIET [Suspect]
     Active Substance: PIRFENIDONE
     Route: 048
     Dates: start: 2015
  2. ATENOLOL. [Concomitant]
     Active Substance: ATENOLOL
  3. ESBRIET [Suspect]
     Active Substance: PIRFENIDONE
     Route: 048
     Dates: start: 2015
  4. ESBRIET [Suspect]
     Active Substance: PIRFENIDONE
     Dosage: 534 MG - 801 MG - 801 MG
     Route: 048
     Dates: start: 20150316
  5. TAMSULOSIN [Concomitant]
     Active Substance: TAMSULOSIN
  6. ESBRIET [Suspect]
     Active Substance: PIRFENIDONE
     Dosage: 534 MG - 534 MG - 801 MG
     Route: 048
     Dates: start: 20150302
  7. ATORVASTATIN [Concomitant]
     Active Substance: ATORVASTATIN
  8. PANTOPRAZOLE [Concomitant]
     Active Substance: PANTOPRAZOLE SODIUM
  9. DUTASTERIDE. [Concomitant]
     Active Substance: DUTASTERIDE
  10. LEVOTHYROXINE. [Concomitant]
     Active Substance: LEVOTHYROXINE
  11. ESBRIET [Suspect]
     Active Substance: PIRFENIDONE
     Route: 048
     Dates: start: 201502
  12. ACETYLSALICYLIC ACID [Concomitant]
     Active Substance: ASPIRIN
  13. CLOPIDOGREL [Concomitant]
     Active Substance: CLOPIDOGREL BISULFATE
  14. FOLIC ACID. [Concomitant]
     Active Substance: FOLIC ACID
  15. ESBRIET [Suspect]
     Active Substance: PIRFENIDONE
     Indication: IDIOPATHIC PULMONARY FIBROSIS
     Route: 048
     Dates: start: 20150113
  16. ESBRIET [Suspect]
     Active Substance: PIRFENIDONE
     Route: 048
     Dates: start: 2015
  17. EZETROL [Concomitant]
     Active Substance: EZETIMIBE

REACTIONS (9)
  - Myositis [Unknown]
  - Fatigue [Unknown]
  - Fall [Unknown]
  - Headache [Unknown]
  - Pulmonary function test abnormal [Not Recovered/Not Resolved]
  - Feeling cold [Unknown]
  - Cough [Unknown]
  - Abdominal discomfort [Not Recovered/Not Resolved]
  - Arthropathy [Unknown]

NARRATIVE: CASE EVENT DATE: 2015
